FAERS Safety Report 7704516-1 (Version None)
Quarter: 2011Q3

REPORT INFORMATION
  Report Type: 
  Country: None (occurrence: None)
  Receive Date: 20110823
  Receipt Date: 20110816
  Transmission Date: 20111222
  Serious: Yes (Other)
  Sender: FDA-Public Use
  Company Number: US-ABBOTT-11P-163-0843773-00

PATIENT
  Age: 25 Year
  Sex: Male

DRUGS (6)
  1. MULTI-VITAMIN [Concomitant]
     Indication: VITAMIN SUPPLEMENTATION
  2. HUMIRA [Suspect]
     Indication: CROHN'S DISEASE
     Dates: start: 20060101, end: 20110201
  3. HUMIRA [Suspect]
     Dates: start: 20110601
  4. FERROUS SULFATE TAB [Concomitant]
     Indication: MINERAL SUPPLEMENTATION
  5. VITAMIN D [Concomitant]
     Indication: VITAMIN SUPPLEMENTATION
  6. NEXIUM [Concomitant]
     Indication: GASTROOESOPHAGEAL REFLUX DISEASE

REACTIONS (3)
  - ABSCESS [None]
  - FISTULA [None]
  - DYSURIA [None]
